FAERS Safety Report 5412432-3 (Version None)
Quarter: 2007Q3

REPORT INFORMATION
  Report Type: 
  Country: None (occurrence: None)
  Receive Date: 20070813
  Receipt Date: 20070808
  Transmission Date: 20080115
  Serious: Yes (Hospitalization)
  Sender: FDA-Public Use
  Company Number: FR-ASTRAZENECA-2007CG01163

PATIENT
  Age: 14542 Day
  Sex: Male
  Weight: 53 kg

DRUGS (6)
  1. NEXIUM [Suspect]
     Route: 048
     Dates: start: 20070206, end: 20070223
  2. TRIFLUCAN [Suspect]
     Indication: FUNGAL OESOPHAGITIS
     Route: 048
     Dates: start: 20070206, end: 20070224
  3. BACTRIM [Suspect]
     Indication: INFECTION PROPHYLAXIS
     Route: 048
     Dates: start: 20070210, end: 20070223
  4. AMOXICILLIN [Concomitant]
     Dates: start: 20070206
  5. GENTAMICIN [Concomitant]
     Route: 042
     Dates: start: 20070206, end: 20070207
  6. DALACIN [Concomitant]
     Dates: start: 20070206, end: 20070206

REACTIONS (2)
  - NEUTROPENIA [None]
  - RASH ERYTHEMATOUS [None]
